FAERS Safety Report 24784400 (Version 1)
Quarter: 2024Q4

REPORT INFORMATION
  Report Type: Spontaneous
  Country: US (occurrence: US)
  Receive Date: 20241227
  Receipt Date: 20241227
  Transmission Date: 20250115
  Serious: Yes (Death, Other)
  Sender: RIGEL PHARMACEUTICALS
  Company Number: US-RIGEL Pharmaceuticals INC-20241200131

PATIENT
  Age: 58 Year

DRUGS (3)
  1. GAVRETO [Suspect]
     Active Substance: PRALSETINIB
     Indication: Familial medullary thyroid cancer
     Dosage: 400 MILLIGRAM, QD
     Route: 065
  2. CABOZANTINIB [Concomitant]
     Active Substance: CABOZANTINIB
     Indication: Familial medullary thyroid cancer
     Dosage: UNK
     Route: 065
  3. ALECTINIB [Concomitant]
     Active Substance: ALECTINIB
     Indication: Familial medullary thyroid cancer
     Dosage: UNK
     Route: 065

REACTIONS (2)
  - Hepatic failure [Fatal]
  - Disease progression [Fatal]
